FAERS Safety Report 13574879 (Version 1)
Quarter: 2017Q2

REPORT INFORMATION
  Report Type: Spontaneous
  Country: US (occurrence: US)
  Receive Date: 20170523
  Receipt Date: 20170523
  Transmission Date: 20170830
  Serious: Yes (Other)
  Sender: FDA-Public Use
  Company Number: US-ALLERGAN-1720969US

PATIENT
  Age: 75 Year
  Sex: Female
  Weight: 61.22 kg

DRUGS (4)
  1. BOTOX [Suspect]
     Active Substance: ONABOTULINUMTOXINA
     Indication: TORTICOLLIS
  2. BOTOX [Suspect]
     Active Substance: ONABOTULINUMTOXINA
     Indication: BLEPHAROSPASM
     Dosage: 200 UNITS, SINGLE
  3. VITAMINS [Concomitant]
     Active Substance: VITAMINS
     Indication: PRODUCT USED FOR UNKNOWN INDICATION
     Dosage: UNK
     Route: 048
  4. VITAMIN A [Concomitant]
     Active Substance: VITAMIN A
     Indication: MACULAR DEGENERATION
     Dosage: UNK
     Route: 048

REACTIONS (2)
  - Visual impairment [Recovering/Resolving]
  - Macular degeneration [Recovering/Resolving]

NARRATIVE: CASE EVENT DATE: 20170427
